FAERS Safety Report 7196847-1 (Version None)
Quarter: 2010Q4

REPORT INFORMATION
  Report Type: 
  Country: None (occurrence: None)
  Receive Date: 20101223
  Receipt Date: 20101122
  Transmission Date: 20110411
  Serious: Yes (Other)
  Sender: FDA-Public Use
  Company Number: US-AMGEN-USASP2010002434

PATIENT

DRUGS (1)
  1. ENBREL [Suspect]
     Indication: PSORIASIS
     Dates: start: 20101019

REACTIONS (5)
  - DEPRESSED MOOD [None]
  - FEELING ABNORMAL [None]
  - HEADACHE [None]
  - INJECTION SITE PAIN [None]
  - MOOD SWINGS [None]
